FAERS Safety Report 22359913 (Version 1)
Quarter: 2023Q2

REPORT INFORMATION
  Report Type: Spontaneous
  Country: US (occurrence: US)
  Receive Date: 20230524
  Receipt Date: 20230524
  Transmission Date: 20230722
  Serious: No
  Sender: FDA-Public Use
  Company Number: US-TARO PHARMACEUTICALS USA INC.-2022TAR00794

PATIENT

DRUGS (2)
  1. CARBAMAZEPINE [Suspect]
     Active Substance: CARBAMAZEPINE
     Indication: Trigeminal neuralgia
     Dosage: 200 MG, QD
     Route: 048
     Dates: start: 2020
  2. CARBAMAZEPINE [Suspect]
     Active Substance: CARBAMAZEPINE
     Dosage: 100 MG, QD
     Route: 048
     Dates: start: 2020

REACTIONS (3)
  - Eye movement disorder [Not Recovered/Not Resolved]
  - Dandruff [Recovering/Resolving]
  - Pupillary disorder [Unknown]
